FAERS Safety Report 4524629-5 (Version None)
Quarter: 2004Q4

REPORT INFORMATION
  Report Type: 
  Country: None (occurrence: None)
  Receive Date: 20041117
  Receipt Date: 20030502
  Transmission Date: 20050328
  Serious: Yes (Other)
  Sender: FDA-Public Use
  Company Number: C2003-1184.01

PATIENT
  Age: 23 Year
  Sex: Female

DRUGS (1)
  1. CLOZAPINE [Suspect]
     Indication: SCHIZOAFFECTIVE DISORDER
     Dosage: 25MG QD, THEN 25MG BID, THEN 25MG TID, THEN 25MG QID, ORAL
     Route: 048
     Dates: start: 20021217, end: 20021220

REACTIONS (1)
  - NEUTROPENIA [None]
